FAERS Safety Report 6605071-X (Version None)
Quarter: 2010Q1

REPORT INFORMATION
  Report Type: 
  Country: None (occurrence: None)
  Receive Date: 20100226
  Receipt Date: 20100223
  Transmission Date: 20100710
  Serious: Yes (Death, Other)
  Sender: FDA-Public Use
  Company Number: US-TEVA-225527USA

PATIENT

DRUGS (1)
  1. CLARAVIS [Suspect]
     Route: 064
     Dates: start: 20090422, end: 20090522

REACTIONS (3)
  - CONGENITAL HERPES SIMPLEX INFECTION [None]
  - HAEMORRHAGE [None]
  - PREMATURE BABY [None]
